FAERS Safety Report 8163120-4 (Version None)
Quarter: 2012Q1

REPORT INFORMATION
  Report Type: 
  Country: None (occurrence: None)
  Receive Date: 20120224
  Receipt Date: 20120215
  Transmission Date: 20120608
  Serious: Yes (Disabling)
  Sender: FDA-Public Use
  Company Number: US-ABBOTT-12P-163-0904683-00

PATIENT
  Sex: Female
  Weight: 62.652 kg

DRUGS (9)
  1. SULFASALAZINE [Concomitant]
     Indication: CROHN'S DISEASE
     Dates: start: 20090101
  2. MESALAMINE [Concomitant]
     Indication: CROHN'S DISEASE
     Dates: start: 20101123, end: 20110101
  3. HUMIRA [Suspect]
     Route: 030
     Dates: start: 20120215
  4. HUMIRA [Suspect]
     Route: 058
     Dates: end: 20090501
  5. IMURAN [Concomitant]
     Indication: CROHN'S DISEASE
     Dates: start: 20101104
  6. HUMIRA [Suspect]
     Dosage: WEEK 2
  7. HUMIRA [Suspect]
     Indication: CROHN'S DISEASE
     Route: 058
     Dates: start: 20090313, end: 20090313
  8. PHENERGAN [Concomitant]
     Indication: NAUSEA
     Dates: start: 20090101
  9. BENTYL [Concomitant]
     Indication: CROHN'S DISEASE
     Dates: start: 20101104

REACTIONS (1)
  - SYSTEMIC LUPUS ERYTHEMATOSUS [None]
